FAERS Safety Report 5577858-6 (Version None)
Quarter: 2007Q4

REPORT INFORMATION
  Report Type: 
  Country: None (occurrence: None)
  Receive Date: 20071227
  Receipt Date: 20071219
  Transmission Date: 20080405
  Serious: Yes (Death, Hospitalization)
  Sender: FDA-Public Use
  Company Number: 163-21880-07121137

PATIENT
  Age: 80 Year
  Sex: Female

DRUGS (1)
  1. REVLIMID [Suspect]
     Indication: MYELODYSPLASTIC SYNDROME
     Dosage: 5 MG, 1 IN 2 D, ORAL
     Route: 048
     Dates: start: 20070420, end: 20071001

REACTIONS (5)
  - ANAEMIA [None]
  - BACTERAEMIA [None]
  - LOBAR PNEUMONIA [None]
  - SEPSIS [None]
  - THROMBOCYTOPENIA [None]
